FAERS Safety Report 8058046-0 (Version None)
Quarter: 2012Q1

REPORT INFORMATION
  Report Type: 
  Country: None (occurrence: None)
  Receive Date: 20120118
  Receipt Date: 20120118
  Transmission Date: 20120608
  Serious: Yes (Hospitalization)
  Sender: FDA-Public Use
  Company Number: None

PATIENT
  Age: 81 Year
  Sex: Male
  Weight: 78.9 kg

DRUGS (19)
  1. TORISEL [Suspect]
     Indication: PROSTATE CANCER
     Dosage: 25 MG Q WEEK IV
     Route: 042
     Dates: start: 20111201, end: 20111201
  2. SPIRIVA [Concomitant]
  3. WARFARIN SODIUM [Concomitant]
  4. METOPROLOL [Concomitant]
  5. PREDNISONE [Concomitant]
  6. PULMICORT [Concomitant]
  7. TRAVATAN [Concomitant]
  8. HYDROCODONE BITARTRATE [Concomitant]
  9. M.V.I. [Concomitant]
  10. ALPHAGAN [Concomitant]
  11. NAMENDA [Concomitant]
  12. TORISEL [Suspect]
     Indication: PROSTATE CANCER
     Dosage: 20 MG Q WEEK IV
     Route: 042
     Dates: start: 20111222, end: 20111229
  13. AZOPT [Concomitant]
  14. SPIRONOLECTONE [Concomitant]
  15. TRELSTAR [Concomitant]
  16. ALBUTEROL [Concomitant]
  17. LANTUS [Concomitant]
  18. SEROQUEL [Concomitant]
  19. CALCIUM [Concomitant]

REACTIONS (1)
  - SKIN DISCOLOURATION [None]
